FAERS Safety Report 5259301-X (Version None)
Quarter: 2007Q1

REPORT INFORMATION
  Report Type: 
  Country: None (occurrence: None)
  Receive Date: 20070308
  Receipt Date: 20070308
  Transmission Date: 20070707
  Serious: Yes (Life-Threatening, Hospitalization)
  Sender: FDA-Public Use
  Company Number: US-BAXTER-2007BH002606

PATIENT
  Age: 35 Year
  Sex: Female
  Weight: 49 kg

DRUGS (5)
  1. PROMETHAZINE [Suspect]
     Indication: NAUSEA
     Route: 065
     Dates: start: 20061130
  2. PROMETHAZINE [Suspect]
     Indication: VOMITING
     Route: 065
     Dates: start: 20061130
  3. PEG-INTRON [Suspect]
     Indication: HEPATITIS C
     Route: 058
     Dates: start: 20060415, end: 20061130
  4. RIBAVIRIN [Suspect]
     Indication: HEPATITIS C
     Route: 048
     Dates: start: 20060415, end: 20061130
  5. SYNTHROID [Concomitant]
     Indication: DRUG USE FOR UNKNOWN INDICATION
     Dosage: DOSE UNIT:UNKNOWN
     Route: 065
     Dates: start: 20060915

REACTIONS (16)
  - ABDOMINAL PAIN [None]
  - CHEST PAIN [None]
  - CHILLS [None]
  - CONTUSION [None]
  - DYSPNOEA [None]
  - EPISTAXIS [None]
  - FATIGUE [None]
  - HAEMOLYTIC ANAEMIA [None]
  - HEADACHE [None]
  - LEUKOPENIA [None]
  - NAUSEA [None]
  - PRODUCTIVE COUGH [None]
  - PYREXIA [None]
  - THROMBOCYTOPENIA [None]
  - VAGINAL HAEMORRHAGE [None]
  - VOMITING [None]
